FAERS Safety Report 6093959-0 (Version None)
Quarter: 2009Q1

REPORT INFORMATION
  Report Type: 
  Country: None (occurrence: None)
  Receive Date: 20090226
  Receipt Date: 20090220
  Transmission Date: 20090719
  Serious: Yes (Hospitalization)
  Sender: FDA-Public Use
  Company Number: A0770320A

PATIENT
  Age: 68 Year
  Sex: Female
  Weight: 119.5 kg

DRUGS (12)
  1. AVANDIA [Suspect]
     Indication: DIABETES MELLITUS
     Dosage: 8MG TWICE PER DAY
     Route: 048
     Dates: start: 20040520, end: 20080920
  2. INSULIN [Concomitant]
  3. HYDROCHLOROTHIAZIDE [Concomitant]
  4. PRAVACHOL [Concomitant]
  5. ZOLOFT [Concomitant]
  6. CYMBALTA [Concomitant]
  7. POTASSIUM CHLORIDE [Concomitant]
  8. ALBUTEROL [Concomitant]
  9. ALPRAZOLAM [Concomitant]
  10. NEURONTIN [Concomitant]
  11. PRILOSEC [Concomitant]
  12. PACERONE [Concomitant]

REACTIONS (2)
  - CARDIAC DISORDER [None]
  - MYOCARDIAL INFARCTION [None]
